FAERS Safety Report 8230266-1 (Version None)
Quarter: 2012Q1

REPORT INFORMATION
  Report Type: 
  Country: None (occurrence: None)
  Receive Date: 20120321
  Receipt Date: 20120321
  Transmission Date: 20120608
  Serious: Yes (Other)
  Sender: FDA-Public Use
  Company Number: None

PATIENT
  Sex: Female
  Weight: 73.9363 kg

DRUGS (5)
  1. NASACORT [Concomitant]
  2. PLAQUENIL [Suspect]
     Indication: CONNECTIVE TISSUE DISORDER
     Dosage: HYDROXYCHLOROQUINE 400 GM DAILY ORAL SWITCHED TO BRAND NAME PLAQUENIL BETTER TOLERATED
     Route: 048
     Dates: start: 20111001
  3. TOPAMAX [Concomitant]
  4. CALCIUM - D [Concomitant]
  5. ACTONEL [Concomitant]

REACTIONS (4)
  - VOMITING [None]
  - ABDOMINAL DISCOMFORT [None]
  - NAUSEA [None]
  - ABDOMINAL PAIN UPPER [None]
